FAERS Safety Report 22766121 (Version 10)
Quarter: 2023Q4

REPORT INFORMATION
  Report Type: Report from Study
  Country: JP (occurrence: JP)
  Receive Date: 20230731
  Receipt Date: 20231129
  Transmission Date: 20240110
  Serious: Yes (Hospitalization, Other)
  Sender: FDA-Public Use
  Company Number: JP-CHUGAI-2023001175AA

PATIENT
  Age: 69 Year
  Sex: Female
  Weight: 59 kg

DRUGS (21)
  1. ATEZOLIZUMAB [Suspect]
     Active Substance: ATEZOLIZUMAB
     Indication: Hormone receptor positive HER2 negative breast cancer
     Dosage: 840 MILLIGRAM, DAY1,15
     Route: 041
     Dates: start: 20221025, end: 20230718
  2. BEVACIZUMAB [Suspect]
     Active Substance: BEVACIZUMAB
     Indication: Hormone receptor positive HER2 negative breast cancer
     Dosage: 10 MILLIGRAM/KILOGRAM, DAY1,15
     Route: 041
     Dates: start: 20221025, end: 20230718
  3. PACLITAXEL [Suspect]
     Active Substance: PACLITAXEL
     Indication: Hormone receptor positive HER2 negative breast cancer
     Dosage: 65-90 MILLIGRAM/SQ. METER, DAY1,8,15 90 UNK
     Route: 041
     Dates: start: 20220725, end: 20230314
  4. PACLITAXEL [Concomitant]
     Active Substance: PACLITAXEL
     Indication: Breast cancer
     Dosage: 65-90 MILLIGRAM/SQ. METER, DAY1,8,15
     Route: 042
     Dates: start: 20221025, end: 20230314
  5. SHAKUYAKUKANZOTO [Concomitant]
     Active Substance: HERBALS
     Indication: Neuropathy peripheral
     Route: 048
     Dates: start: 20230221
  6. ALLEGRA [Concomitant]
     Active Substance: FEXOFENADINE HYDROCHLORIDE
     Indication: Rhinitis prophylaxis
     Dosage: 60 MILLIGRAM, BID, BEFORE STARTING THE CLINICAL STUDY
     Route: 048
  7. CALCIUM CARBONATE\CHOLECALCIFEROL\MAGNESIUM CARBONATE [Concomitant]
     Active Substance: CALCIUM CARBONATE\CHOLECALCIFEROL\MAGNESIUM CARBONATE
     Indication: Prophylaxis
     Dosage: 2 DOSAGE FORM, QD, BEFORE STARTING THE CLINICAL STUDY
     Route: 048
  8. CELECOXIB [Concomitant]
     Active Substance: CELECOXIB
     Indication: Cancer pain
     Dosage: 100 MILLIGRAM, BID
     Route: 048
     Dates: start: 20221018
  9. NEXIUM [Concomitant]
     Active Substance: ESOMEPRAZOLE MAGNESIUM
     Indication: Gastritis prophylaxis
     Dosage: 10 MILLIGRAM, QD
     Route: 048
     Dates: start: 20221025
  10. METHYLCOBALAMIN [Concomitant]
     Active Substance: METHYLCOBALAMIN
     Indication: Neuropathy peripheral
     Dosage: 500 MICROGRAM, TID, BEFORE STARTING THE CLINICAL STUDY
     Route: 048
  11. CALONAL [Concomitant]
     Active Substance: ACETAMINOPHEN
     Indication: Pain prophylaxis
     Dosage: 500 MILLIGRAM, TID, BEFORE STARTING THE CLINICAL STUDY
     Route: 048
  12. OXYCODONE HYDROCHLORIDE [Concomitant]
     Active Substance: OXYCODONE HYDROCHLORIDE
     Indication: Cancer pain
     Dosage: 2.5 MILLIGRAM, QID, BEFORE STARTING THE CLINICAL STUDY
     Route: 048
  13. LYRICA [Concomitant]
     Active Substance: PREGABALIN
     Indication: Neuropathy peripheral
     Route: 048
     Dates: start: 20230221
  14. LEVOTHYROXINE SODIUM [Concomitant]
     Active Substance: LEVOTHYROXINE SODIUM
     Indication: Hypothyroidism
     Route: 048
     Dates: start: 20221220
  15. LIVOSTIN [Concomitant]
     Active Substance: LEVOCABASTINE HYDROCHLORIDE
     Indication: Nasal congestion
     Route: 045
     Dates: start: 20230512
  16. FLUTICASONE FUROATE [Concomitant]
     Active Substance: FLUTICASONE FUROATE
     Indication: Nasal congestion
     Route: 045
     Dates: start: 20230512
  17. SALAGEN [Concomitant]
     Active Substance: PILOCARPINE HYDROCHLORIDE
     Indication: Nasal congestion
     Route: 048
     Dates: start: 20230512
  18. TRANEXAMIC ACID [Concomitant]
     Active Substance: TRANEXAMIC ACID
     Indication: Nasal congestion
     Route: 048
     Dates: start: 20230616
  19. RINDERON VG [Concomitant]
     Active Substance: BETAMETHASONE VALERATE\GENTAMICIN SULFATE
     Indication: Nasal congestion
     Route: 061
     Dates: start: 20230519
  20. SP [DEQUALINIUM CHLORIDE] [Concomitant]
     Indication: Pain prophylaxis
     Dosage: UNK, PRN
     Route: 048
     Dates: start: 20230616
  21. CANDESARTAN CILEXETIL [Concomitant]
     Active Substance: CANDESARTAN CILEXETIL
     Indication: Hypertension
     Dosage: 4 MILLIGRAM, QD, BEFORE STARTING THE CLINICAL STUDY
     Route: 048

REACTIONS (7)
  - Pyrexia [Recovering/Resolving]
  - Hepatic function abnormal [Recovering/Resolving]
  - Coagulopathy [Recovering/Resolving]
  - Renal impairment [Recovering/Resolving]
  - Cerebral haemorrhage [Recovering/Resolving]
  - Renal impairment [Recovering/Resolving]
  - Metastases to central nervous system [Unknown]

NARRATIVE: CASE EVENT DATE: 20230719
